FAERS Safety Report 8792244 (Version 2)
Quarter: 2012Q4

REPORT INFORMATION
  Report Type: 
  Country: US (occurrence: US)
  Receive Date: 20120918
  Receipt Date: 20121121
  Transmission Date: 20130627
  Serious: Yes (Other)
  Sender: FDA-Public Use
  Company Number: US-PFIZER INC-2012229021

PATIENT
  Age: 41 Year
  Sex: Male
  Weight: 84 kg

DRUGS (3)
  1. CHANTIX [Suspect]
     Indication: SMOKING CESSATION THERAPY
     Dosage: UNK
  2. CHANTIX [Suspect]
     Dosage: 0.5 mg, UNK
  3. CHANTIX [Suspect]
     Dosage: 1 mg, 2x/day

REACTIONS (3)
  - Loss of consciousness [Unknown]
  - Abnormal dreams [Unknown]
  - Rectal fissure [Unknown]
